FAERS Safety Report 9367152 (Version 1)
Quarter: 2013Q2

REPORT INFORMATION
  Report Type: Spontaneous
  Country: US (occurrence: US)
  Receive Date: 20130625
  Receipt Date: 20130625
  Transmission Date: 20140414
  Serious: No
  Sender: FDA-Public Use
  Company Number: US-ASTELLAS-2012US005749

PATIENT
  Sex: 0

DRUGS (3)
  1. VESICARE [Suspect]
     Indication: HYPERTONIC BLADDER
     Dosage: 5 MG, UID/QD
     Route: 048
     Dates: start: 20120622, end: 20120625
  2. ATENOLOL [Concomitant]
     Indication: HYPERTENSION
     Dosage: 25 MG, UID/QD
     Route: 048
  3. COSOPT [Concomitant]
     Indication: GLAUCOMA
     Dosage: UNK
     Route: 065

REACTIONS (5)
  - Drug ineffective [Unknown]
  - Ocular hyperaemia [Unknown]
  - Nasopharyngitis [Unknown]
  - Fatigue [Unknown]
  - Dry mouth [Unknown]
